FAERS Safety Report 22248809 (Version 1)
Quarter: 2023Q2

REPORT INFORMATION
  Report Type: Spontaneous
  Country: AU (occurrence: AU)
  Receive Date: 20230425
  Receipt Date: 20230425
  Transmission Date: 20230722
  Serious: Yes (Other)
  Sender: FDA-Public Use
  Company Number: AU-ASTELLAS-2023US012464

PATIENT
  Age: 47 Year
  Sex: Female

DRUGS (3)
  1. VESICARE [Suspect]
     Active Substance: SOLIFENACIN SUCCINATE
     Indication: Hypertonic bladder
     Route: 065
  2. VESICARE [Suspect]
     Active Substance: SOLIFENACIN SUCCINATE
     Route: 065
     Dates: start: 2021
  3. VESICARE [Suspect]
     Active Substance: SOLIFENACIN SUCCINATE
     Route: 065

REACTIONS (22)
  - Circulatory collapse [Unknown]
  - Weight decreased [Unknown]
  - Nausea [Unknown]
  - Vomiting [Unknown]
  - Lethargy [Unknown]
  - Catheter site pain [Unknown]
  - Catheter site discharge [Unknown]
  - Muscular weakness [Unknown]
  - Thirst [Unknown]
  - Dehydration [Unknown]
  - Vein collapse [Unknown]
  - Muscular weakness [Unknown]
  - Electric shock sensation [Unknown]
  - Malaise [Unknown]
  - Asthenia [Unknown]
  - Dysstasia [Unknown]
  - Illness [Unknown]
  - Skin burning sensation [Unknown]
  - Dry mouth [Unknown]
  - Muscle tightness [Unknown]
  - Overdose [Unknown]
  - Off label use [Unknown]
